FAERS Safety Report 6073565-4 (Version None)
Quarter: 2009Q1

REPORT INFORMATION
  Report Type: 
  Country: None (occurrence: None)
  Receive Date: 20090211
  Receipt Date: 20090204
  Transmission Date: 20090719
  Serious: Yes (Other)
  Sender: FDA-Public Use
  Company Number: US-ASTRAZENECA-2009UW03236

PATIENT
  Sex: Male

DRUGS (3)
  1. SYMBICORT [Suspect]
     Route: 055
  2. NEXIUM [Suspect]
     Route: 048
  3. SEROQUEL [Suspect]
     Route: 048

REACTIONS (2)
  - DRUG HYPERSENSITIVITY [None]
  - LUNG INFECTION [None]
